FAERS Safety Report 7345430-3 (Version None)
Quarter: 2011Q1

REPORT INFORMATION
  Report Type: 
  Country: None (occurrence: None)
  Receive Date: 20110310
  Receipt Date: 20110304
  Transmission Date: 20110831
  Serious: Yes (Hospitalization, Other)
  Sender: FDA-Public Use
  Company Number: US-ABBOTT-10P-163-0669222-00

PATIENT
  Sex: Male
  Weight: 89.892 kg

DRUGS (8)
  1. FLOMAX [Concomitant]
     Indication: PRODUCT USED FOR UNKNOWN INDICATION
  2. TAMSULSOIN [Concomitant]
     Indication: PROSTATOMEGALY
  3. TRILIPIX [Concomitant]
     Indication: BLOOD CHOLESTEROL INCREASED
  4. CRESTOR [Concomitant]
     Indication: PRODUCT USED FOR UNKNOWN INDICATION
  5. HUMIRA [Suspect]
     Indication: PSORIASIS
     Route: 058
     Dates: start: 20081201, end: 20100823
  6. LISINOPRIL [Concomitant]
     Indication: HYPERTENSION
     Route: 048
  7. HUMIRA [Suspect]
  8. LORTAB [Concomitant]
     Indication: PAIN
     Dosage: 7.5/325 MG AS NEEDED
     Route: 048

REACTIONS (7)
  - PYREXIA [None]
  - PAIN [None]
  - HEADACHE [None]
  - INTERVERTEBRAL DISC DEGENERATION [None]
  - MENINGITIS VIRAL [None]
  - ASTHENIA [None]
  - BACK PAIN [None]
